FAERS Safety Report 5151728-X (Version None)
Quarter: 2006Q4

REPORT INFORMATION
  Report Type: 
  Country: None (occurrence: None)
  Receive Date: 20061109
  Receipt Date: 20061028
  Transmission Date: 20070319
  Serious: Yes (Other)
  Sender: FDA-Public Use
  Company Number: 2006103737

PATIENT
  Age: 14 Year
  Sex: Female
  Weight: 66.2252 kg

DRUGS (5)
  1. GEODON [Suspect]
     Indication: BIPOLAR DISORDER
     Dosage: 160 MG (60MG IN AM, 100MG AT BEDTIME); ORAL
     Route: 048
     Dates: start: 20060401
  2. IBUPROFEN [Suspect]
  3. SYNTHROID [Concomitant]
  4. VITAMIN CAP [Concomitant]
  5. CALCIUM [Concomitant]

REACTIONS (3)
  - DRUG HYPERSENSITIVITY [None]
  - PAIN [None]
  - TARDIVE DYSKINESIA [None]
